FAERS Safety Report 4534233-0 (Version None)
Quarter: 2004Q4

REPORT INFORMATION
  Report Type: 
  Country: None (occurrence: None)
  Receive Date: 20041214
  Receipt Date: 20040825
  Transmission Date: 20050328
  Serious: No
  Sender: FDA-Public Use
  Company Number: 2004231928US

PATIENT
  Sex: Female

DRUGS (1)
  1. BEXTRA [Suspect]
     Indication: OSTEOARTHRITIS
     Dosage: 20 MG BID ORAL
     Route: 048
     Dates: start: 20040801

REACTIONS (1)
  - LIP ULCERATION [None]
